FAERS Safety Report 13145777 (Version 1)
Quarter: 2017Q1

REPORT INFORMATION
  Report Type: Spontaneous
  Country: US (occurrence: US)
  Receive Date: 20170124
  Receipt Date: 20170124
  Transmission Date: 20170428
  Serious: Yes (Hospitalization)
  Sender: FDA-Public Use
  Company Number: US-RELYPSA-RLY2017000238

PATIENT
  Age: 73 Year
  Sex: Male

DRUGS (5)
  1. ISOSORBIDE MONONITRATE. [Concomitant]
     Active Substance: ISOSORBIDE MONONITRATE
  2. HYDRALAZINE HCL [Concomitant]
     Active Substance: HYDRALAZINE HYDROCHLORIDE
  3. VELTASSA [Suspect]
     Active Substance: PATIROMER
     Indication: HYPERKALAEMIA
     Dosage: 8.4 G, QD
     Route: 048
     Dates: start: 20160629
  4. CARVEDILOL. [Concomitant]
     Active Substance: CARVEDILOL
  5. NIFEDIAC CC [Concomitant]
     Active Substance: NIFEDIPINE

REACTIONS (2)
  - Urinary tract infection [Not Recovered/Not Resolved]
  - Device end of service [Not Recovered/Not Resolved]

NARRATIVE: CASE EVENT DATE: 20170111
